FAERS Safety Report 13703523 (Version 1)
Quarter: 2017Q2

REPORT INFORMATION
  Report Type: Spontaneous
  Country: CA (occurrence: CA)
  Receive Date: 20170629
  Receipt Date: 20170629
  Transmission Date: 20170830
  Serious: Yes (Hospitalization)
  Sender: FDA-Public Use
  Company Number: CA-ACTELION-A-NJ2017-155938

PATIENT
  Age: 6 Year
  Sex: Female
  Weight: 18.9 kg

DRUGS (9)
  1. RANITIDINE. [Concomitant]
     Active Substance: RANITIDINE
  2. MULTIVITAMINS [Concomitant]
     Active Substance: VITAMINS
  3. ALDAZIDE [Concomitant]
     Active Substance: BUTHIAZIDE\SPIRONOLACTONE
  4. OPSUMIT [Suspect]
     Active Substance: MACITENTAN
     Indication: PULMONARY ARTERIAL HYPERTENSION
     Dosage: 2.5 MG, UNK
     Route: 048
     Dates: start: 20170602
  5. REACTINE [Concomitant]
     Active Substance: CETIRIZINE HYDROCHLORIDE
  6. TYLENOL [Concomitant]
     Active Substance: ACETAMINOPHEN
  7. REMODULIN [Concomitant]
     Active Substance: TREPROSTINIL
  8. TADALAFIL [Concomitant]
     Active Substance: TADALAFIL
  9. SYNTHROID [Concomitant]
     Active Substance: LEVOTHYROXINE SODIUM

REACTIONS (2)
  - Off label use [Unknown]
  - Incorrect product formulation administered [Unknown]
